FAERS Safety Report 20228217 (Version 3)
Quarter: 2022Q1

REPORT INFORMATION
  Report Type: Spontaneous
  Country: CN (occurrence: None)
  Receive Date: 20211224
  Receipt Date: 20220217
  Transmission Date: 20220423
  Serious: Yes (Hospitalization, Other)
  Sender: FDA-Public Use
  Company Number: 2021A869304

PATIENT
  Sex: Male
  Weight: 57.5 kg

DRUGS (2)
  1. TAGRISSO [Suspect]
     Active Substance: OSIMERTINIB
     Indication: Lung adenocarcinoma
     Route: 048
  2. AUMOLERTINIB [Concomitant]
     Active Substance: AUMOLERTINIB
     Route: 065

REACTIONS (7)
  - Pharyngeal swelling [Recovering/Resolving]
  - Oral disorder [Recovering/Resolving]
  - Feeding disorder [Recovering/Resolving]
  - Toxicity to various agents [Not Recovered/Not Resolved]
  - Skin cancer [Unknown]
  - Rash [Not Recovered/Not Resolved]
  - Nasopharyngitis [Unknown]
